FAERS Safety Report 24341673 (Version 1)
Quarter: 2024Q3

REPORT INFORMATION
  Report Type: Spontaneous
  Country: AU (occurrence: AU)
  Receive Date: 20240920
  Receipt Date: 20240920
  Transmission Date: 20241016
  Serious: Yes (Hospitalization, Other)
  Sender: SANDOZ
  Company Number: AU-BRISTOL-MYERS SQUIBB COMPANY-2024-133700

PATIENT
  Age: 63 Year
  Sex: Male

DRUGS (22)
  1. ALLOPURINOL [Suspect]
     Active Substance: ALLOPURINOL
     Indication: Prophylaxis
     Dosage: 300 MG, QD
     Route: 048
     Dates: start: 20240814, end: 20240821
  2. BACTRIM DS [Suspect]
     Active Substance: SULFAMETHOXAZOLE\TRIMETHOPRIM
     Indication: Prophylaxis
     Dosage: UNK UNK, QD
     Route: 048
     Dates: start: 20240814, end: 20240821
  3. GOLCADOMIDE [Suspect]
     Active Substance: GOLCADOMIDE
     Indication: Diffuse large B-cell lymphoma
     Dosage: 0.4 MG, QD
     Route: 048
     Dates: start: 20240814
  4. CYCLOPHOSPHAMIDE [Suspect]
     Active Substance: CYCLOPHOSPHAMIDE
     Indication: Diffuse large B-cell lymphoma
     Dosage: 671.25 MG/M2, Q3W
     Route: 042
     Dates: start: 20240814
  5. DOXORUBICIN HYDROCHLORIDE [Suspect]
     Active Substance: DOXORUBICIN HYDROCHLORIDE
     Indication: Diffuse large B-cell lymphoma
     Dosage: 89.5 MG/M2, Q3W
     Route: 042
     Dates: start: 20240814
  6. PREDNISOLONE [Suspect]
     Active Substance: PREDNISOLONE
     Indication: Diffuse large B-cell lymphoma
     Dosage: 100 MG, QD
     Route: 048
     Dates: start: 20240814
  7. RITUXIMAB [Suspect]
     Active Substance: RITUXIMAB
     Indication: Diffuse large B-cell lymphoma
     Dosage: 375 MG/M2, Q3W
     Route: 042
     Dates: start: 20240814
  8. VINCRISTINE SULFATE [Suspect]
     Active Substance: VINCRISTINE SULFATE
     Indication: Diffuse large B-cell lymphoma
     Dosage: 2 MG/M2, Q3W
     Route: 042
     Dates: start: 20240814
  9. ACYCLOVIR [Concomitant]
     Active Substance: ACYCLOVIR
     Indication: Prophylaxis
     Dosage: 200 MG, QD
     Route: 048
     Dates: start: 20240814
  10. LORATADINE [Concomitant]
     Active Substance: LORATADINE
     Indication: Pruritus
     Dosage: 10 MG
     Route: 048
     Dates: start: 20240819
  11. DILTIAZEM [Concomitant]
     Active Substance: DILTIAZEM
     Indication: Heart rate abnormal
     Dosage: 60 MG, QD
     Route: 048
     Dates: start: 202403
  12. IBUPROFEN [Concomitant]
     Active Substance: IBUPROFEN
     Indication: Pain
     Dosage: 256 MG
     Route: 048
     Dates: start: 2024
  13. HYDROCHLOROTHIAZIDE\TELMISARTAN [Concomitant]
     Active Substance: HYDROCHLOROTHIAZIDE\TELMISARTAN
     Indication: Hypertension
     Dosage: UNK, QD
     Route: 048
     Dates: start: 2020
  14. OXYCODONE [Concomitant]
     Active Substance: OXYCODONE
     Indication: Pain
     Dosage: 5 MG
     Route: 048
     Dates: start: 2024
  15. ACETAMINOPHEN [Concomitant]
     Active Substance: ACETAMINOPHEN
     Indication: Pain
     Dosage: 5 MG
     Route: 048
     Dates: start: 202407
  16. POLARAMINE [Concomitant]
     Active Substance: DEXCHLORPHENIRAMINE MALEATE
     Indication: Pruritus
     Dosage: 2 MG, QD; PRN)
     Route: 048
     Dates: start: 20240819
  17. POVIDONE-IODINE [Concomitant]
     Active Substance: POVIDONE-IODINE
     Indication: Oropharyngeal pain
     Dosage: 120 ML, PRN
     Route: 048
     Dates: start: 20240819
  18. RIVAROXABAN [Concomitant]
     Active Substance: RIVAROXABAN
     Indication: Anticoagulant therapy
     Dosage: 10 MG, QD
     Route: 048
     Dates: start: 20240814, end: 20240821
  19. ROXITHROMYCIN [Concomitant]
     Active Substance: ROXITHROMYCIN
     Indication: Splenectomy
     Dosage: 150 MG, QD
     Route: 048
     Dates: start: 2017
  20. TADALAFIL [Concomitant]
     Active Substance: TADALAFIL
     Indication: Prostatic disorder
     Dosage: 5 MG;; INTERVAL: 0 WEEK;
     Route: 048
     Dates: start: 2021
  21. VALERIAN [Concomitant]
     Active Substance: VALERIAN
     Indication: Myalgia
     Dosage: 260 MG
     Route: 061
     Dates: start: 202407
  22. VIAGRA [Concomitant]
     Active Substance: SILDENAFIL CITRATE
     Indication: Prostatic disorder
     Dosage: 20 MG, Q2W
     Route: 048
     Dates: start: 2021

REACTIONS (2)
  - Febrile neutropenia [Not Recovered/Not Resolved]
  - Presyncope [Not Recovered/Not Resolved]

NARRATIVE: CASE EVENT DATE: 20240821
